FAERS Safety Report 10152192 (Version 2)
Quarter: 2014Q2

REPORT INFORMATION
  Report Type: Report from Study
  Country: CA (occurrence: CA)
  Receive Date: 20140505
  Receipt Date: 20140505
  Transmission Date: 20141212
  Serious: Yes (Death)
  Sender: FDA-Public Use
  Company Number: PHHY2014CA010339

PATIENT
  Age: 50 Year
  Sex: Female

DRUGS (2)
  1. SANDOSTATIN LAR [Suspect]
     Indication: CERVIX CARCINOMA
     Dosage: 20 MG, EVERY 4 WEEKS
     Route: 030
     Dates: start: 20140120
  2. SANDOSTATIN LAR [Suspect]
     Indication: OFF LABEL USE

REACTIONS (2)
  - Death [Fatal]
  - Malaise [Unknown]
